FAERS Safety Report 4684122-6 (Version None)
Quarter: 2005Q2

REPORT INFORMATION
  Report Type: 
  Country: None (occurrence: None)
  Receive Date: 20050526
  Receipt Date: 20050225
  Transmission Date: 20051028
  Serious: No
  Sender: FDA-Public Use
  Company Number: 05P-163-0292080-00

PATIENT
  Age: 79 Year
  Sex: Female
  Weight: 68.0396 kg

DRUGS (6)
  1. MAVIK [Suspect]
     Indication: BLOOD PRESSURE INCREASED
     Dosage: 4 MG, PER ORAL;  6 MG, PER ORAL
     Route: 048
     Dates: start: 20030101, end: 20050101
  2. MAVIK [Suspect]
     Indication: BLOOD PRESSURE INCREASED
     Dosage: 4 MG, PER ORAL;  6 MG, PER ORAL
     Route: 048
     Dates: start: 20050101
  3. PROPACET 100 [Concomitant]
  4. PSYLLIUM HYDROPHILIC MUCILLOID [Concomitant]
  5. DIPHENHYDRAMINE HCL [Concomitant]
  6. FLUOXETINE HCL [Concomitant]

REACTIONS (3)
  - ABDOMINAL PAIN [None]
  - BLOOD PRESSURE INCREASED [None]
  - CONDITION AGGRAVATED [None]
